FAERS Safety Report 13612330 (Version 1)
Quarter: 2017Q2

REPORT INFORMATION
  Report Type: Spontaneous
  Country: HR (occurrence: HR)
  Receive Date: 20170605
  Receipt Date: 20170605
  Transmission Date: 20170830
  Serious: Yes (Death, Other)
  Sender: FDA-Public Use
  Company Number: PHHY2017HR079685

PATIENT
  Age: 95 Year
  Sex: Female

DRUGS (7)
  1. PRADAXA [Suspect]
     Active Substance: DABIGATRAN ETEXILATE MESYLATE
     Indication: ATRIAL FIBRILLATION
     Dosage: 220 MG, 2 IN 1 D
     Route: 048
     Dates: end: 20160708
  2. LANITOP [Concomitant]
     Active Substance: METILDIGOXIN
     Indication: ISCHAEMIC CARDIOMYOPATHY
     Dosage: 0.5 MG, PER DAY
     Route: 048
  3. ZALDIAR [Suspect]
     Active Substance: ACETAMINOPHEN\TRAMADOL HYDROCHLORIDE
     Indication: LIGAMENT SPRAIN
     Dosage: 1 DF, UNK
     Route: 048
     Dates: start: 20160606, end: 20160608
  4. ASPIRIN BAYER [Suspect]
     Active Substance: ASPIRIN
     Indication: ANTICOAGULANT THERAPY
     Dosage: 100 MG, UNK
     Route: 048
  5. FURSEMID [Concomitant]
     Active Substance: FUROSEMIDE
     Indication: ISCHAEMIC CARDIOMYOPATHY
     Route: 048
  6. VOLTAREN [Suspect]
     Active Substance: DICLOFENAC SODIUM
     Indication: LIGAMENT SPRAIN
     Route: 065
     Dates: start: 20160706
  7. PRAZINE [Concomitant]
     Active Substance: PROMAZINE HYDROCHLORIDE
     Dosage: 75 MG, PER DAY (COATED TABLET)
     Route: 048
     Dates: start: 201606

REACTIONS (9)
  - Overdose [Fatal]
  - Chronic kidney disease [Fatal]
  - Drug interaction [Fatal]
  - Hyperglycaemia [Fatal]
  - Haematochezia [Unknown]
  - Hypoglycaemia [Unknown]
  - Intestinal haemorrhage [Fatal]
  - Normochromic normocytic anaemia [Fatal]
  - Inflammatory marker increased [Unknown]

NARRATIVE: CASE EVENT DATE: 20160709
